FAERS Safety Report 5502712-5 (Version None)
Quarter: 2007Q4

REPORT INFORMATION
  Report Type: 
  Country: None (occurrence: None)
  Receive Date: 20071029
  Receipt Date: 20071015
  Transmission Date: 20080405
  Serious: Yes (Hospitalization)
  Sender: FDA-Public Use
  Company Number: 2007BI016421

PATIENT
  Age: 61 Year
  Sex: Male

DRUGS (2)
  1. NATALIZUMAB [Suspect]
     Indication: MULTIPLE SCLEROSIS
     Dosage: 300 MG;QM;IV
     Route: 042
     Dates: start: 20070515
  2. NATALIZUMAB [Suspect]

REACTIONS (13)
  - ABASIA [None]
  - APRAXIA [None]
  - BLOOD GLUCOSE INCREASED [None]
  - CONDITION AGGRAVATED [None]
  - CONFUSIONAL STATE [None]
  - ESCHERICHIA URINARY TRACT INFECTION [None]
  - GAIT DISTURBANCE [None]
  - MULTIPLE SCLEROSIS [None]
  - MUTISM [None]
  - NEUROGENIC BLADDER [None]
  - NEUROGENIC BOWEL [None]
  - PARAPARESIS [None]
  - WHITE BLOOD CELL COUNT INCREASED [None]
